FAERS Safety Report 8813071 (Version 2)
Quarter: 2012Q4

REPORT INFORMATION
  Report Type: 
  Country: US (occurrence: US)
  Receive Date: 20120927
  Receipt Date: 20121010
  Transmission Date: 20130627
  Serious: No
  Sender: FDA-Public Use
  Company Number: US-VERTEX PHARMACEUTICAL INC.-2012-021620

PATIENT
  Age: 49 Year
  Sex: Male
  Weight: 73 kg

DRUGS (9)
  1. VX-950 [Suspect]
     Indication: HEPATITIS C
     Dosage: 750 mg, tid
     Route: 048
  2. PEGASYS [Suspect]
     Indication: HEPATITIS C
     Dosage: 180 ?g, UNK
  3. RIBAPAK [Concomitant]
     Indication: HEPATITIS C
     Dosage: 600 UNK, qd
  4. ATACAND [Concomitant]
     Dosage: 32 mg, UNK
  5. NORVASC [Concomitant]
     Dosage: 2.5 mg, UNK
  6. FAMOTIDINE [Concomitant]
     Dosage: 40 mg, UNK
  7. VITAMIN B12                        /00056201/ [Concomitant]
     Dosage: 1000 ?g, UNK
  8. ACETAMINOPHEN [Concomitant]
     Dosage: 500 mg, UNK
  9. VITAMIN D /00107901/ [Concomitant]
     Dosage: 1000 ut, UNK

REACTIONS (7)
  - Hepatic pain [Unknown]
  - Hepatic enzyme increased [Unknown]
  - Influenza like illness [Unknown]
  - Proctalgia [Unknown]
  - Pruritus generalised [Unknown]
  - Anal pruritus [Unknown]
  - Anorectal discomfort [Unknown]
